FAERS Safety Report 9959001 (Version 1)
Quarter: 2014Q1

REPORT INFORMATION
  Report Type: Report from Study
  Country: US (occurrence: US)
  Receive Date: 20140305
  Receipt Date: 20140305
  Transmission Date: 20141002
  Serious: No
  Sender: FDA-Public Use
  Company Number: US-ABBVIE-13P-163-1102211-00

PATIENT
  Age: 32 Year
  Sex: Female

DRUGS (16)
  1. HUMIRA [Suspect]
     Indication: CROHN^S DISEASE
     Dates: start: 20121119
  2. LEVOTHYROXINE [Concomitant]
     Indication: HYPOTHYROIDISM
     Route: 048
  3. CITALOPRAM [Concomitant]
     Indication: DEPRESSION
     Route: 048
  4. LORAZEPAM [Concomitant]
     Indication: ANXIETY
     Route: 048
  5. BETAMETHASONE DIPROPIONATE [Concomitant]
     Indication: ECZEMA
     Dosage: AUGMENTED 0.05% TO APPLY TO AFFECTED AREA AS NEEDED
  6. ASACOL [Concomitant]
     Indication: CROHN^S DISEASE
     Route: 048
  7. AVIANE [Concomitant]
     Indication: CONTRACEPTION
     Route: 048
  8. ACYCLOVIR [Concomitant]
     Indication: PRODUCT USED FOR UNKNOWN INDICATION
     Route: 048
  9. FISH OIL WITH OMEGA 3 [Concomitant]
     Indication: DEPRESSED LEVEL OF CONSCIOUSNESS
  10. L-LYSINE [Concomitant]
     Indication: SKIN DISORDER
     Route: 048
  11. ALIVE MULTIVITAMIN GUMMIES [Concomitant]
     Indication: VITAMIN SUPPLEMENTATION
  12. VITAMIN B 12 [Concomitant]
     Indication: VITAMIN SUPPLEMENTATION
     Route: 048
  13. PAPAYA ENZYMES [Concomitant]
     Indication: CROHN^S DISEASE
  14. DIPHENHYDRAMINE [Concomitant]
     Indication: INSOMNIA
  15. NAPROXEN SODIUM [Concomitant]
     Indication: HEADACHE
  16. PHENYLEPHRINE [Concomitant]
     Indication: SINUS CONGESTION
     Route: 048

REACTIONS (2)
  - Stress at work [Recovered/Resolved]
  - Abdominal discomfort [Recovered/Resolved]
